FAERS Safety Report 19901088 (Version 10)
Quarter: 2024Q2

REPORT INFORMATION
  Report Type: Spontaneous
  Country: US (occurrence: US)
  Receive Date: 20210930
  Receipt Date: 20240408
  Transmission Date: 20240716
  Serious: No
  Sender: FDA-Public Use
  Company Number: US-PFIZER INC-202101146095

PATIENT
  Age: 61 Year
  Sex: Male

DRUGS (5)
  1. INLYTA [Suspect]
     Active Substance: AXITINIB
     Dosage: 5 MG
     Dates: start: 20210809
  2. INLYTA [Suspect]
     Active Substance: AXITINIB
     Dosage: 5 MG
     Dates: start: 20210914
  3. INLYTA [Suspect]
     Active Substance: AXITINIB
     Dosage: MONDAY, WEDNESDAY AND FRIDAY HE TAKES 2 TABLETS, REST OF THE WEEK HE TAKES 1 TABLET DAILY
  4. INLYTA [Suspect]
     Active Substance: AXITINIB
     Dosage: MONDAY, WEDNESDAY AND FRIDAY HE TAKES 2 TABLETS, REST OF THE WEEK HE TAKES 1 TABLET DAILY
  5. ENSURE [Concomitant]
     Active Substance: AMINO ACIDS\DEXTROSE\ELECTROLYTES NOS\SOYBEAN OIL\VITAMINS
     Dosage: UNK

REACTIONS (20)
  - Gingival pain [Not Recovered/Not Resolved]
  - Musculoskeletal stiffness [Not Recovered/Not Resolved]
  - Pain [Not Recovered/Not Resolved]
  - Ear pain [Unknown]
  - Irritability [Unknown]
  - Rash [Unknown]
  - Oral mucosal eruption [Unknown]
  - Peripheral swelling [Unknown]
  - Stomatitis [Recovered/Resolved]
  - Diarrhoea [Not Recovered/Not Resolved]
  - Nausea [Unknown]
  - Chills [Unknown]
  - Fatigue [Unknown]
  - Dysphonia [Unknown]
  - Asthenia [Unknown]
  - Dry skin [Unknown]
  - Pain in extremity [Unknown]
  - Skin lesion [Unknown]
  - Burning sensation [Unknown]
  - Rash pruritic [Unknown]

NARRATIVE: CASE EVENT DATE: 20210101
